FAERS Safety Report 6286125-7 (Version None)
Quarter: 2009Q3

REPORT INFORMATION
  Report Type: 
  Country: None (occurrence: None)
  Receive Date: 20090728
  Receipt Date: 20090715
  Transmission Date: 20100115
  Serious: Yes (Other)
  Sender: FDA-Public Use
  Company Number: DK-ROCHE-644033

PATIENT
  Age: 34 Year
  Sex: Female

DRUGS (6)
  1. ALL-TRANS-RETINOIC ACID [Suspect]
     Route: 065
  2. ALL-TRANS-RETINOIC ACID [Suspect]
     Dosage: DOSE REDUCED BY 50%
     Route: 065
  3. DAUNORUBICIN HCL [Concomitant]
  4. DAUNORUBICIN HCL [Concomitant]
     Dosage: CONSOLIDATION COURSE
  5. CYTARABINE [Concomitant]
  6. CYTARABINE [Concomitant]
     Dosage: CONSOLIDATION COURSE

REACTIONS (4)
  - BLEEDING PERIPARTUM [None]
  - GINGIVAL HYPERTROPHY [None]
  - HEPATIC ENZYME INCREASED [None]
  - VAGINAL PERFORATION [None]
